FAERS Safety Report 19874869 (Version 1)
Quarter: 2021Q3

REPORT INFORMATION
  Report Type: Spontaneous
  Country: DE (occurrence: DE)
  Receive Date: 20210923
  Receipt Date: 20210923
  Transmission Date: 20211014
  Serious: No
  Sender: FDA-Public Use
  Company Number: DE-GW PHARMA-202109DEGW04524

PATIENT

DRUGS (17)
  1. EPIDYOLEX [Suspect]
     Active Substance: CANNABIDIOL
     Indication: PRODUCT USED FOR UNKNOWN INDICATION
     Dosage: 800 MILLIGRAM, QD
     Route: 048
  2. VALPROAT CHRONO [Concomitant]
     Active Substance: VALPROATE SODIUM
     Dosage: 500 MILLIGRAM, QD
     Route: 065
     Dates: start: 2005, end: 2005
  3. RISPERIDONE. [Concomitant]
     Active Substance: RISPERIDONE
     Indication: PRODUCT USED FOR UNKNOWN INDICATION
     Dosage: 2 MILLIGRAM, BID (2?0?2 MILLIGRAM)
     Route: 065
  4. LAMOTRIGIN [Concomitant]
     Active Substance: LAMOTRIGINE
     Indication: PRODUCT USED FOR UNKNOWN INDICATION
     Dosage: 100 MILLIGRAM, QD (UPTO 100 MILLIGRAM/ DAY)
     Route: 065
     Dates: start: 1996
  5. LAMOTRIGIN [Concomitant]
     Active Substance: LAMOTRIGINE
     Dosage: 300 MILLIGRAM, QD
     Route: 065
     Dates: start: 2005, end: 2008
  6. LAMOTRIGIN [Concomitant]
     Active Substance: LAMOTRIGINE
     Dosage: 100 MILLIGRAM, BID (100?0?100 MILLIGRAM)
     Route: 065
  7. VALPROAT CHRONO [Concomitant]
     Active Substance: VALPROATE SODIUM
     Dosage: 1750 MILLIGRAM, QD
     Route: 065
     Dates: start: 2005, end: 2008
  8. VALPROAT CHRONO [Concomitant]
     Active Substance: VALPROATE SODIUM
     Dosage: 1500 MILLIGRAM, QD
     Route: 065
     Dates: start: 2008, end: 2009
  9. LAMOTRIGIN [Concomitant]
     Active Substance: LAMOTRIGINE
     Dosage: 200 MILLIGRAM, QD
     Route: 065
     Dates: start: 2008, end: 2009
  10. MELNEURIN [Concomitant]
     Active Substance: MELPERONE HYDROCHLORIDE
     Indication: PRODUCT USED FOR UNKNOWN INDICATION
     Dosage: 100 MILLIGRAM, QD (0?0?0?100 MILLIGRAM)
     Route: 065
  11. CLOBAZAM. [Concomitant]
     Active Substance: CLOBAZAM
     Dosage: 1.25 MILLIGRAM, QD
     Route: 065
  12. VALPROAT CHRONO [Concomitant]
     Active Substance: VALPROATE SODIUM
     Indication: PRODUCT USED FOR UNKNOWN INDICATION
     Dosage: 1250 MILLIGRAM, QD (MAX 1250 MILLIGRAM/DAY)
     Route: 065
     Dates: start: 1996
  13. LAKTULOSE [Concomitant]
     Active Substance: LACTULOSE
     Indication: PRODUCT USED FOR UNKNOWN INDICATION
     Dosage: 20 MILLILITER, QD (20?0?0 MILLILITER)
     Route: 065
  14. CLOBAZAM. [Concomitant]
     Active Substance: CLOBAZAM
     Indication: PRODUCT USED FOR UNKNOWN INDICATION
     Dosage: UNK
     Route: 065
     Dates: start: 2016
  15. CLOBAZAM. [Concomitant]
     Active Substance: CLOBAZAM
     Dosage: 5 MILLIGRAM, QD
     Route: 065
  16. VALPROAT CHRONO [Concomitant]
     Active Substance: VALPROATE SODIUM
     Dosage: 750 MILLIGRAM, BID (750?0?750 MILLIGRAM)
     Route: 065
  17. TAMSULOSIN [Concomitant]
     Active Substance: TAMSULOSIN
     Indication: PRODUCT USED FOR UNKNOWN INDICATION
     Dosage: 0.4 MILLIGRAM, QD (0.4?0?0 MILLIGRAM)
     Route: 065

REACTIONS (2)
  - Off label use [Unknown]
  - Psychomotor hyperactivity [Unknown]
